FAERS Safety Report 24433180 (Version 4)
Quarter: 2025Q1

REPORT INFORMATION
  Report Type: Report from Study
  Country: CN (occurrence: CN)
  Receive Date: 20241014
  Receipt Date: 20250109
  Transmission Date: 20250409
  Serious: Yes (Other)
  Sender: NOVARTIS
  Company Number: CN-002147023-NVSC2024CN182868

PATIENT
  Age: 59 Year
  Sex: Female

DRUGS (29)
  1. MEKINIST [Suspect]
     Active Substance: TRAMETINIB DIMETHYL SULFOXIDE
     Indication: BRAF V600E mutation positive
     Route: 048
     Dates: start: 20240815, end: 20240817
  2. MEKINIST [Suspect]
     Active Substance: TRAMETINIB DIMETHYL SULFOXIDE
     Indication: Malignant melanoma
     Route: 048
     Dates: start: 20240818, end: 20240819
  3. MEKINIST [Suspect]
     Active Substance: TRAMETINIB DIMETHYL SULFOXIDE
     Route: 048
     Dates: start: 20240820, end: 20240820
  4. MEKINIST [Suspect]
     Active Substance: TRAMETINIB DIMETHYL SULFOXIDE
     Route: 048
     Dates: start: 20240821, end: 20240822
  5. MEKINIST [Suspect]
     Active Substance: TRAMETINIB DIMETHYL SULFOXIDE
     Route: 048
     Dates: start: 20240823, end: 20240926
  6. MEKINIST [Suspect]
     Active Substance: TRAMETINIB DIMETHYL SULFOXIDE
     Route: 048
     Dates: start: 20240927, end: 20240930
  7. MEKINIST [Suspect]
     Active Substance: TRAMETINIB DIMETHYL SULFOXIDE
     Route: 048
     Dates: start: 20241001, end: 20241016
  8. MEKINIST [Suspect]
     Active Substance: TRAMETINIB DIMETHYL SULFOXIDE
     Route: 048
     Dates: start: 20241017, end: 20241019
  9. MEKINIST [Suspect]
     Active Substance: TRAMETINIB DIMETHYL SULFOXIDE
     Route: 048
     Dates: start: 20241020
  10. TAFINLAR [Suspect]
     Active Substance: DABRAFENIB MESYLATE
     Indication: BRAF V600E mutation positive
     Route: 048
     Dates: start: 20240815, end: 20240816
  11. TAFINLAR [Suspect]
     Active Substance: DABRAFENIB MESYLATE
     Indication: Malignant melanoma
     Route: 048
     Dates: start: 20240817, end: 20240817
  12. TAFINLAR [Suspect]
     Active Substance: DABRAFENIB MESYLATE
     Route: 048
     Dates: start: 20240818, end: 20240819
  13. TAFINLAR [Suspect]
     Active Substance: DABRAFENIB MESYLATE
     Route: 048
     Dates: start: 20240820, end: 20240820
  14. TAFINLAR [Suspect]
     Active Substance: DABRAFENIB MESYLATE
     Route: 048
     Dates: start: 20240821, end: 20240821
  15. TAFINLAR [Suspect]
     Active Substance: DABRAFENIB MESYLATE
     Route: 048
     Dates: start: 20240821, end: 20240822
  16. TAFINLAR [Suspect]
     Active Substance: DABRAFENIB MESYLATE
     Route: 048
     Dates: start: 20240823, end: 20240926
  17. TAFINLAR [Suspect]
     Active Substance: DABRAFENIB MESYLATE
     Route: 048
     Dates: start: 20240927, end: 20240930
  18. TAFINLAR [Suspect]
     Active Substance: DABRAFENIB MESYLATE
     Route: 048
     Dates: start: 20241001, end: 20241001
  19. TAFINLAR [Suspect]
     Active Substance: DABRAFENIB MESYLATE
     Route: 048
     Dates: start: 20241002, end: 20241015
  20. TAFINLAR [Suspect]
     Active Substance: DABRAFENIB MESYLATE
     Route: 048
     Dates: start: 20241016, end: 20241016
  21. TAFINLAR [Suspect]
     Active Substance: DABRAFENIB MESYLATE
     Route: 048
     Dates: start: 20241017, end: 20241019
  22. TAFINLAR [Suspect]
     Active Substance: DABRAFENIB MESYLATE
     Route: 048
     Dates: start: 20241020, end: 20241027
  23. TAFINLAR [Suspect]
     Active Substance: DABRAFENIB MESYLATE
     Route: 048
     Dates: start: 20241028, end: 20241105
  24. TAFINLAR [Suspect]
     Active Substance: DABRAFENIB MESYLATE
     Route: 048
     Dates: start: 20241106
  25. METHYLCOBALAMIN [Concomitant]
     Active Substance: METHYLCOBALAMIN
     Indication: Anxiety
     Route: 048
     Dates: start: 20240809, end: 20240831
  26. MAGNESIUM ISOGLYCYRRHIZINATE [Concomitant]
     Active Substance: MAGNESIUM ISOGLYCYRRHIZINATE
     Indication: Ill-defined disorder
     Route: 042
     Dates: start: 20240816, end: 20240819
  27. ILAPRAZOLE [Concomitant]
     Active Substance: ILAPRAZOLE
     Indication: Ill-defined disorder
     Route: 042
     Dates: start: 20240816, end: 20240821
  28. SODIUM THIOSULFATE [Concomitant]
     Active Substance: SODIUM THIOSULFATE
     Indication: Ill-defined disorder
     Route: 042
     Dates: start: 20240816, end: 20240819
  29. DEXTROSE\SODIUM CHLORIDE [Concomitant]
     Active Substance: DEXTROSE\SODIUM CHLORIDE
     Indication: Vehicle solution use
     Route: 042
     Dates: start: 20240818, end: 20240818

REACTIONS (8)
  - Panniculitis [Not Recovered/Not Resolved]
  - Constipation [Recovered/Resolved]
  - Myalgia [Not Recovered/Not Resolved]
  - Nausea [Recovered/Resolved]
  - Pyrexia [Recovered/Resolved]
  - Pyrexia [Recovered/Resolved]
  - Pyrexia [Recovered/Resolved]
  - Pyrexia [Recovered/Resolved]

NARRATIVE: CASE EVENT DATE: 20240817
